FAERS Safety Report 6156606-5 (Version None)
Quarter: 2009Q2

REPORT INFORMATION
  Report Type: 
  Country: None (occurrence: None)
  Receive Date: 20090416
  Receipt Date: 20090406
  Transmission Date: 20091009
  Serious: Yes (Hospitalization, Other)
  Sender: FDA-Public Use
  Company Number: US-AMGEN-TCS341750

PATIENT
  Sex: Female

DRUGS (2)
  1. ENBREL [Suspect]
     Indication: RHEUMATOID ARTHRITIS
     Route: 058
  2. METHOTREXATE [Concomitant]

REACTIONS (11)
  - ARTHRALGIA [None]
  - BLOOD COUNT ABNORMAL [None]
  - CHOLECYSTECTOMY [None]
  - COUGH [None]
  - DYSPNOEA [None]
  - HAEMORRHAGE [None]
  - HEPATIC CIRRHOSIS [None]
  - HIP FRACTURE [None]
  - INJECTION SITE HAEMORRHAGE [None]
  - LUNG DISORDER [None]
  - OSTEOPOROSIS [None]
